FAERS Safety Report 9832106 (Version 4)
Quarter: 2014Q1

REPORT INFORMATION
  Report Type: Spontaneous
  Country: JP (occurrence: JP)
  Receive Date: 20140121
  Receipt Date: 20140207
  Transmission Date: 20141002
  Serious: Yes (Other)
  Sender: FDA-Public Use
  Company Number: JP-JNJFOC-20131008454

PATIENT
  Age: 82 Year
  Sex: Female

DRUGS (17)
  1. TRAMCET [Suspect]
     Indication: PAIN
     Dosage: 1 PER 1 DAY
     Route: 048
     Dates: start: 20131018, end: 20131025
  2. TRAMCET [Suspect]
     Indication: PAIN
     Dosage: 2 PER 1 DAY
     Route: 048
     Dates: start: 20131012, end: 20131017
  3. TRAMCET [Suspect]
     Indication: PAIN
     Dosage: 3 PER 1 DAY
     Route: 048
     Dates: start: 20131004, end: 20131011
  4. TRAMCET [Suspect]
     Indication: PAIN
     Dosage: 2 PER 1 DAY
     Route: 048
     Dates: start: 20131001, end: 20131003
  5. TRAMCET [Suspect]
     Indication: PAIN
     Dosage: 1 PER 1 DAY
     Route: 048
     Dates: start: 20130928, end: 20130930
  6. SERENAMIN [Concomitant]
     Route: 048
  7. FUROSEMIDE [Concomitant]
     Route: 065
  8. PRAVASTATIN SODIUM [Concomitant]
     Route: 048
  9. HIBON [Concomitant]
     Route: 048
  10. POTASSIUM MAGNESIUM ASPARTATE [Concomitant]
     Route: 065
  11. D-ALFA [Concomitant]
     Route: 048
  12. TEPRENONE [Concomitant]
     Route: 048
  13. CINAL [Concomitant]
     Route: 048
  14. OMEPRAZOLE [Concomitant]
     Route: 065
  15. MAGMITT [Concomitant]
     Route: 048
  16. NAUZELIN [Concomitant]
     Route: 065
  17. SENNOSIDE [Concomitant]
     Route: 048

REACTIONS (5)
  - Hallucination [Recovered/Resolved]
  - Delirium [Recovered/Resolved]
  - Hallucination, visual [Recovering/Resolving]
  - Delusion [Recovering/Resolving]
  - Depression [Recovering/Resolving]
